FAERS Safety Report 10524653 (Version 5)
Quarter: 2015Q1

REPORT INFORMATION
  Report Type: Report from Study
  Country: US (occurrence: US)
  Receive Date: 20141017
  Receipt Date: 20150225
  Transmission Date: 20150720
  Serious: Yes (Hospitalization, Other)
  Sender: FDA-Public Use
  Company Number: US-ALEXION PHARMACEUTICALS INC.-A201403974

PATIENT

DRUGS (1)
  1. SOLIRIS [Suspect]
     Active Substance: ECULIZUMAB
     Indication: PRODUCT USED FOR UNKNOWN INDICATION
     Route: 042

REACTIONS (9)
  - Pneumonia [Not Recovered/Not Resolved]
  - Insomnia [Unknown]
  - Fall [Recovered/Resolved]
  - Clostridium difficile infection [Not Recovered/Not Resolved]
  - Oxygen saturation abnormal [Unknown]
  - Forearm fracture [Not Recovered/Not Resolved]
  - Cough [Unknown]
  - Clostridium difficile infection [Unknown]
  - Dyspnoea [Not Recovered/Not Resolved]

NARRATIVE: CASE EVENT DATE: 201410
